FAERS Safety Report 14204059 (Version 1)
Quarter: 2017Q4

REPORT INFORMATION
  Report Type: Spontaneous
  Country: US (occurrence: US)
  Receive Date: 20171117
  Receipt Date: 20171117
  Transmission Date: 20180321
  Serious: Yes (Other)
  Sender: FDA-Public Use
  Company Number: None

PATIENT
  Age: 68 Year
  Sex: Female
  Weight: 67.5 kg

DRUGS (11)
  1. ALBUTEROL. [Concomitant]
     Active Substance: ALBUTEROL
  2. SIMVASTATIN. [Concomitant]
     Active Substance: SIMVASTATIN
  3. SINGULAIR [Concomitant]
     Active Substance: MONTELUKAST SODIUM
  4. SYMBICORT [Suspect]
     Active Substance: BUDESONIDE\FORMOTEROL FUMARATE DIHYDRATE
     Indication: INTERSTITIAL LUNG DISEASE
     Dosage: ?          QUANTITY:1 INHALATION(S);?
     Route: 055
  5. BUPROPION. [Concomitant]
     Active Substance: BUPROPION
  6. TYLENOL [Concomitant]
     Active Substance: ACETAMINOPHEN
  7. PRESNISONE [Concomitant]
  8. VITAMIN D [Concomitant]
     Active Substance: CHOLECALCIFEROL
  9. ADVAIR DISKUS [Concomitant]
     Active Substance: FLUTICASONE PROPIONATE\SALMETEROL XINAFOATE
  10. SPIRIVA [Concomitant]
     Active Substance: TIOTROPIUM BROMIDE MONOHYDRATE
  11. CLONAZEPAM. [Concomitant]
     Active Substance: CLONAZEPAM

REACTIONS (13)
  - Dizziness [None]
  - Chest discomfort [None]
  - Headache [None]
  - Tremor [None]
  - Nervousness [None]
  - Confusional state [None]
  - Irritability [None]
  - Chest pain [None]
  - Wheezing [None]
  - Sinus disorder [None]
  - Dyspnoea [None]
  - Gastrointestinal disorder [None]
  - Throat irritation [None]

NARRATIVE: CASE EVENT DATE: 20171110
